FAERS Safety Report 7951884-1 (Version None)
Quarter: 2011Q4

REPORT INFORMATION
  Report Type: 
  Country: None (occurrence: None)
  Receive Date: 20111201
  Receipt Date: 20111201
  Transmission Date: 20120403
  Serious: Yes (Other)
  Sender: FDA-Public Use
  Company Number: None

PATIENT
  Sex: Male
  Weight: 85.7 kg

DRUGS (13)
  1. LYRICA [Suspect]
     Indication: PROCEDURAL PAIN
     Dosage: 100 MG
     Route: 048
     Dates: start: 20111011, end: 20111013
  2. LORATADINE [Concomitant]
  3. WARFARIN SODIUM [Concomitant]
  4. ENOXAPARIN [Concomitant]
     Route: 058
  5. CELECOXIB [Concomitant]
  6. TRIAMTERENE AND HYDROCHLOROTHIAZIDE [Concomitant]
  7. LISINOPRIL [Concomitant]
  8. VERAPAMIL EXTENDED-RELEASE [Concomitant]
  9. HYDROMORPHONE HCL [Concomitant]
     Route: 048
  10. FERROUS SULFATE SR [Concomitant]
  11. PANTOPRAZOLE [Concomitant]
  12. DOCUSATE [Concomitant]
  13. EZETIMIBE [Concomitant]

REACTIONS (2)
  - HYPOXIA [None]
  - SOMNOLENCE [None]
